FAERS Safety Report 4356744-3 (Version None)
Quarter: 2004Q2

REPORT INFORMATION
  Report Type: 
  Country: None (occurrence: None)
  Receive Date: 20040507
  Receipt Date: 20040503
  Transmission Date: 20050107
  Serious: Yes (Death, Other)
  Sender: FDA-Public Use
  Company Number: KII-2003-0010014

PATIENT
  Sex: Male

DRUGS (1)
  1. MORPHINE SULFATE [Suspect]
     Indication: PAIN
     Dosage: UNK UNK, UNK, UNKNOWN
     Route: 065

REACTIONS (6)
  - BLADDER CANCER [None]
  - CARCINOMA [None]
  - CHEST PAIN [None]
  - FALL [None]
  - LUNG NEOPLASM MALIGNANT [None]
  - MALIGNANT NEOPLASM PROGRESSION [None]
